FAERS Safety Report 4277718-7 (Version None)
Quarter: 2004Q1

REPORT INFORMATION
  Report Type: 
  Country: None (occurrence: None)
  Receive Date: 20040121
  Receipt Date: 20040105
  Transmission Date: 20041129
  Serious: Yes (Death, Other)
  Sender: FDA-Public Use
  Company Number: GBS040114224

PATIENT
  Age: 79 Year
  Sex: Female

DRUGS (7)
  1. EVISTA [Suspect]
     Indication: OSTEOPOROSIS
     Dosage: 60 MG/1 DAY
     Dates: start: 20030926
  2. CALCICHEW D3 [Concomitant]
  3. CITALOPRAM [Concomitant]
  4. SIMVASTATIN [Concomitant]
  5. AMITRIPTYLINE [Concomitant]
  6. ACETAMINOPHEN [Concomitant]
  7. CODEINE PHOSPHATE [Concomitant]

REACTIONS (1)
  - DEEP VEIN THROMBOSIS [None]
